FAERS Safety Report 17561394 (Version 7)
Quarter: 2021Q2

REPORT INFORMATION
  Report Type: Spontaneous
  Country: US (occurrence: US)
  Receive Date: 20200319
  Receipt Date: 20210503
  Transmission Date: 20210716
  Serious: No
  Sender: FDA-Public Use
  Company Number: US-VERTEX PHARMACEUTICALS-2020-005537

PATIENT
  Age: 50 Year
  Sex: Female

DRUGS (29)
  1. AZITHROMYCIN ANHYDROUS. [Concomitant]
     Active Substance: AZITHROMYCIN ANHYDROUS
     Dosage: 1 DOSAGE FORM, MON, WED, FRI
     Route: 048
     Dates: start: 20200915
  2. CREON [Concomitant]
     Active Substance: PANCRELIPASE AMYLASE\PANCRELIPASE LIPASE\PANCRELIPASE PROTEASE
     Dosage: 3?4 TABS, 3?4 TIMES A DAY
  3. ESTRADIOL. [Concomitant]
     Active Substance: ESTRADIOL
  4. VENTOLIN HFA [Concomitant]
     Active Substance: ALBUTEROL SULFATE
     Dosage: 1 PUFF, EVERY 4 HOURS
     Dates: start: 20200302
  5. FLONASE [Concomitant]
     Active Substance: FLUTICASONE PROPIONATE
  6. IBUPROFEN. [Suspect]
     Active Substance: IBUPROFEN
     Indication: PRODUCT USED FOR UNKNOWN INDICATION
     Dosage: SMALL DOSES
     Route: 048
  7. TRESIBA [Concomitant]
     Active Substance: INSULIN DEGLUDEC
     Dosage: 100 UNIT/ML
     Route: 058
  8. IBUPROFEN. [Suspect]
     Active Substance: IBUPROFEN
     Indication: HEADACHE
  9. DEXILANT [Concomitant]
     Active Substance: DEXLANSOPRAZOLE
  10. ALBUTEROL [SALBUTAMOL] [Concomitant]
     Active Substance: ALBUTEROL
  11. SODIUM CHLORIDE. [Concomitant]
     Active Substance: SODIUM CHLORIDE
  12. VITAMIN D [COLECALCIFEROL] [Concomitant]
     Active Substance: CHOLECALCIFEROL
  13. PREDNISONE. [Concomitant]
     Active Substance: PREDNISONE
  14. HUMALOG [Concomitant]
     Active Substance: INSULIN LISPRO
     Dosage: 100 UNIT/ML
     Route: 058
  15. ADVAIR HFA [Concomitant]
     Active Substance: FLUTICASONE PROPIONATE\SALMETEROL XINAFOATE
  16. CREON [Concomitant]
     Active Substance: PANCRELIPASE AMYLASE\PANCRELIPASE LIPASE\PANCRELIPASE PROTEASE
     Dosage: 2 DOSAGE FORM, WITH EACH MEAL
     Route: 048
  17. PANTOPRAZOLE SODIUM. [Concomitant]
     Active Substance: PANTOPRAZOLE SODIUM
     Dosage: 40 MG, 1 DAILY
     Route: 048
  18. TRIKAFTA [Suspect]
     Active Substance: ELEXACAFTOR\IVACAFTOR\TEZACAFTOR
     Indication: CYSTIC FIBROSIS
     Dosage: 2 ORANGE TABS (100MG ELEXA/50MG TEZA/75MG IVA) AM AND 1 BLUE TAB (150MG IVA) PM
     Route: 048
     Dates: start: 20200306
  19. CAYSTON [Concomitant]
     Active Substance: AZTREONAM
     Dosage: UNK
  20. VENTOLINE [SALBUTAMOL] [Concomitant]
     Active Substance: ALBUTEROL SULFATE
  21. CALCIUM [Concomitant]
     Active Substance: CALCIUM
  22. ALBUTEROL SULFATE. [Concomitant]
     Active Substance: ALBUTEROL SULFATE
     Dosage: 2.5 MG/ 3 ML; EVERY 4 HRS,
     Dates: start: 20191104
  23. MIRALAX [Concomitant]
     Active Substance: POLYETHYLENE GLYCOL 3350
  24. PULMOZYME [Concomitant]
     Active Substance: DORNASE ALFA
     Dosage: 1 NEBULIZED VIAL PER DAY
     Dates: start: 20200302
  25. HYPERSAL [Concomitant]
     Active Substance: SODIUM CHLORIDE
     Dosage: UNK, BID
     Dates: start: 20191104
  26. WIXELA INHUB [Concomitant]
     Active Substance: FLUTICASONE PROPIONATE\SALMETEROL XINAFOATE
  27. RANITIDINE. [Concomitant]
     Active Substance: RANITIDINE
  28. REPLESTA [Concomitant]
     Active Substance: CHOLECALCIFEROL
     Dosage: 50000 UNIT WAFER, 1 DOSAGE FORM, WEEKLY
     Route: 048
  29. PANTOPRAZOLE SODIUM. [Concomitant]
     Active Substance: PANTOPRAZOLE SODIUM

REACTIONS (22)
  - Oedema peripheral [Unknown]
  - Headache [Not Recovered/Not Resolved]
  - Sinus disorder [Not Recovered/Not Resolved]
  - Peripheral coldness [Not Recovered/Not Resolved]
  - Muscle fatigue [Recovered/Resolved]
  - Vomiting [Unknown]
  - Abdominal pain upper [Recovered/Resolved]
  - Abnormal faeces [Unknown]
  - Respiratory tract congestion [Not Recovered/Not Resolved]
  - Pain [Recovered/Resolved]
  - Gastrointestinal pain [Recovered/Resolved]
  - Diarrhoea [Recovering/Resolving]
  - Malabsorption [Not Recovered/Not Resolved]
  - Rash erythematous [Recovered/Resolved]
  - Blood pressure increased [Unknown]
  - Abdominal tenderness [Recovered/Resolved]
  - Myalgia [Not Recovered/Not Resolved]
  - Weight increased [Unknown]
  - Gastrointestinal sounds abnormal [Recovered/Resolved]
  - Productive cough [Recovered/Resolved]
  - Nausea [Unknown]
  - Haemoptysis [Unknown]

NARRATIVE: CASE EVENT DATE: 2020
